FAERS Safety Report 8586175-1 (Version None)
Quarter: 2012Q3

REPORT INFORMATION
  Report Type: 
  Country: None (occurrence: None)
  Receive Date: 20120810
  Receipt Date: 20120803
  Transmission Date: 20120928
  Serious: Yes (Other)
  Sender: FDA-Public Use
  Company Number: JP-GLAXOSMITHKLINE-B0813266A

PATIENT
  Sex: Female

DRUGS (3)
  1. MENOAID [Concomitant]
     Indication: MENOPAUSAL SYMPTOMS
     Route: 062
     Dates: start: 20090521, end: 20120701
  2. PAXIL [Suspect]
     Dosage: 10MG ALTERNATE DAYS
     Route: 048
     Dates: start: 20120705, end: 20120719
  3. PAXIL [Suspect]
     Indication: DEPRESSION
     Dosage: 10MG PER DAY
     Route: 048
     Dates: start: 20100511, end: 20120704

REACTIONS (1)
  - HAEMORRHAGE SUBCUTANEOUS [None]
